FAERS Safety Report 4554494-1 (Version None)
Quarter: 2005Q1

REPORT INFORMATION
  Report Type: 
  Country: None (occurrence: None)
  Receive Date: 20050118
  Receipt Date: 20040702
  Transmission Date: 20050727
  Serious: Yes (Other)
  Sender: FDA-Public Use
  Company Number: US-ROCHE-373500

PATIENT
  Age: 65 Year
  Sex: Female

DRUGS (10)
  1. PEGASYS [Suspect]
     Indication: HEPATITIS C
     Route: 058
     Dates: start: 20040123, end: 20041224
  2. PEGASYS [Suspect]
     Dosage: STRENGTH REPORTED AS 180 MCG/ML.  DOSAGE REGIMEN REPORTED AS 0.5 EVERY WEEK.
     Route: 058
     Dates: start: 20041224
  3. COPEGUS [Suspect]
     Indication: HEPATITIS C
     Route: 048
     Dates: start: 20040123, end: 20041224
  4. FOSAMAX [Concomitant]
     Indication: OSTEOPENIA
     Route: 048
     Dates: start: 20030615
  5. FOLIC ACID [Concomitant]
     Indication: DRUG USE FOR UNKNOWN INDICATION
     Route: 048
  6. TYLENOL [Concomitant]
     Indication: PAIN
     Route: 065
  7. BENADRYL [Concomitant]
     Indication: INSOMNIA
     Route: 065
  8. PEPTO BISMOL [Concomitant]
     Indication: DRUG USE FOR UNKNOWN INDICATION
     Route: 065
  9. IMODIUM [Concomitant]
     Indication: DRUG USE FOR UNKNOWN INDICATION
     Route: 065
  10. OTC MEDICATIONS [Concomitant]
     Dosage: MULTIVITAMINS WITHOUT IRON, BIOTIN, VITAMIN E, FISH OIL CAPSULES AND CALCIUM CARBONATE DAILY.

REACTIONS (15)
  - ANAEMIA [None]
  - ASTHENIA [None]
  - BLOOD TRIGLYCERIDES INCREASED [None]
  - DIARRHOEA [None]
  - FATIGUE [None]
  - FLATULENCE [None]
  - MOUTH ULCERATION [None]
  - NEUTROPHIL COUNT DECREASED [None]
  - OSTEONECROSIS [None]
  - PALATAL DISORDER [None]
  - PRURITUS [None]
  - RASH [None]
  - STOMATITIS [None]
  - VAGINAL INFECTION [None]
  - WHITE BLOOD CELL COUNT DECREASED [None]
